FAERS Safety Report 8564408-5 (Version None)
Quarter: 2012Q3

REPORT INFORMATION
  Report Type: 
  Country: None (occurrence: None)
  Receive Date: 20120803
  Receipt Date: 20120730
  Transmission Date: 20120928
  Serious: Yes (Other)
  Sender: FDA-Public Use
  Company Number: US-JNJFOC-20120715387

PATIENT
  Sex: Male
  Weight: 81.65 kg

DRUGS (7)
  1. XARELTO [Suspect]
     Indication: THROMBOSIS
     Route: 048
     Dates: start: 20120501
  2. XARELTO [Suspect]
     Indication: ATRIAL FIBRILLATION
     Route: 048
     Dates: start: 20120501
  3. LASIX [Concomitant]
     Route: 048
  4. CAPTOPRIL [Concomitant]
     Indication: CARDIAC DISORDER
     Route: 048
  5. OMEPRAZOLE [Concomitant]
     Indication: GASTRIC DISORDER
     Route: 048
  6. ASPIRIN [Suspect]
     Indication: ATRIAL FIBRILLATION
     Route: 048
  7. CARVEDILOL [Concomitant]
     Indication: CARDIAC DISORDER
     Route: 048
     Dates: start: 19850101

REACTIONS (14)
  - BLOOD GLUCOSE INCREASED [None]
  - ABDOMINAL DISTENSION [None]
  - RADIATION PROSTATITIS [None]
  - HAEMORRHOIDAL HAEMORRHAGE [None]
  - ANAEMIA [None]
  - FLATULENCE [None]
  - BLOOD ALBUMIN DECREASED [None]
  - STRESS [None]
  - POLYP [None]
  - DIZZINESS [None]
  - LETHARGY [None]
  - RECTAL HAEMORRHAGE [None]
  - INCREASED TENDENCY TO BRUISE [None]
  - APPETITE DISORDER [None]
